FAERS Safety Report 7296089 (Version 3)
Quarter: 2014Q1

REPORT INFORMATION
  Report Type: Spontaneous
  Country: US (occurrence: US)
  Receive Date: 20100226
  Receipt Date: 20140128
  Transmission Date: 20141002
  Serious: Yes (Other)
  Sender: FDA-Public Use
  Company Number: US-JNJFOC-20100209428

PATIENT
  Sex: Female
  Weight: 111.13 kg

DRUGS (20)
  1. DURAGESIC [Suspect]
     Indication: BACK PAIN
     Route: 062
     Dates: end: 2009
  2. DURAGESIC [Suspect]
     Indication: BACK PAIN
     Route: 062
     Dates: start: 2008
  3. DURAGESIC [Suspect]
     Indication: BACK PAIN
     Route: 062
     Dates: start: 2009
  4. LEVOTHYROXINE [Concomitant]
     Indication: THYROID DISORDER
     Route: 048
  5. PROTONIX [Concomitant]
     Indication: DYSPEPSIA
     Route: 048
  6. BENICAR [Concomitant]
     Indication: HYPERTENSION
     Route: 048
  7. SINGULAIR [Concomitant]
     Indication: ASTHMA
     Route: 048
  8. SOMA [Concomitant]
     Indication: NECK PAIN
     Route: 048
  9. SOMA [Concomitant]
     Indication: BACK PAIN
     Route: 048
  10. ELAVIL [Concomitant]
     Indication: FIBROMYALGIA
     Route: 048
  11. PROMETRIUM [Concomitant]
     Indication: HORMONE REPLACEMENT THERAPY
     Route: 048
  12. LIDODERM [Concomitant]
     Indication: NECK PAIN
     Route: 061
  13. LIDODERM [Concomitant]
     Indication: BACK PAIN
     Route: 061
  14. ADVAIR [Concomitant]
     Indication: ASTHMA
     Route: 055
  15. ASTHMA MEDICATION [Concomitant]
     Indication: ASTHMA
     Route: 055
  16. PERCOCET [Concomitant]
     Indication: PAIN
     Route: 048
  17. LEVSIN [Concomitant]
     Indication: IRRITABLE BOWEL SYNDROME
     Route: 048
  18. ZEGERID [Concomitant]
     Indication: DYSPEPSIA
     Route: 048
  19. INDOMETHACIN [Concomitant]
     Indication: ANTIINFLAMMATORY THERAPY
     Route: 048
  20. HORMONE PILLS [Concomitant]
     Indication: HORMONE REPLACEMENT THERAPY
     Route: 048

REACTIONS (6)
  - Atrial fibrillation [Recovering/Resolving]
  - Product quality issue [Unknown]
  - Application site urticaria [Not Recovered/Not Resolved]
  - Application site pruritus [Not Recovered/Not Resolved]
  - Application site pain [Not Recovered/Not Resolved]
  - Application site scar [Not Recovered/Not Resolved]
